FAERS Safety Report 5191421-0 (Version None)
Quarter: 2006Q4

REPORT INFORMATION
  Report Type: 
  Country: None (occurrence: None)
  Receive Date: 20061226
  Receipt Date: 20061121
  Transmission Date: 20070319
  Serious: Yes (Death, Hospitalization, Other)
  Sender: FDA-Public Use
  Company Number: PE-BRISTOL-MYERS SQUIBB COMPANY-13585732

PATIENT
  Age: 43 Year
  Sex: Male

DRUGS (5)
  1. CISPLATIN [Suspect]
     Indication: GASTRIC CANCER
     Route: 041
     Dates: start: 20061024, end: 20061024
  2. TS-1 [Suspect]
     Indication: GASTRIC CANCER
     Route: 048
     Dates: start: 20061024, end: 20061113
  3. OXYCODONE HCL [Concomitant]
     Indication: ABDOMINAL PAIN
     Route: 048
     Dates: start: 20061106
  4. RANITIDINE [Concomitant]
     Indication: GASTRITIS PROPHYLAXIS
     Route: 048
     Dates: start: 20061106
  5. ONDANSETRON HCL [Concomitant]
     Indication: NAUSEA
     Route: 048
     Dates: start: 20061106

REACTIONS (5)
  - GASTRIC CANCER [None]
  - HYPOVOLAEMIC SHOCK [None]
  - MALIGNANT NEOPLASM PROGRESSION [None]
  - METABOLIC ENCEPHALOPATHY [None]
  - RENAL FAILURE ACUTE [None]
